FAERS Safety Report 4520409-5 (Version None)
Quarter: 2004Q4

REPORT INFORMATION
  Report Type: 
  Country: None (occurrence: None)
  Receive Date: 20041206
  Receipt Date: 20041206
  Transmission Date: 20050328
  Serious: Yes (Congenital Anomaly)
  Sender: FDA-Public Use
  Company Number: None

PATIENT
  Age: 31 Year
  Sex: Female
  Weight: 65.7716 kg

DRUGS (1)
  1. REGLAN [Suspect]
     Indication: HYPEREMESIS GRAVIDARUM
     Dosage: SUBCUTANEOUS
     Route: 058
     Dates: start: 20030506, end: 20030831

REACTIONS (2)
  - CONGENITAL PULMONARY VALVE ATRESIA [None]
  - DRUG EXPOSURE DURING PREGNANCY [None]
